FAERS Safety Report 6348080-0 (Version None)
Quarter: 2009Q3

REPORT INFORMATION
  Report Type: 
  Country: None (occurrence: None)
  Receive Date: 20090910
  Receipt Date: 20090904
  Transmission Date: 20100115
  Serious: Yes (Hospitalization, Other)
  Sender: FDA-Public Use
  Company Number: GB-B.I. PHARMACEUTICALS,INC./RIDGEFIELD-2009-BP-10545YA

PATIENT
  Age: 70 Year
  Sex: Male

DRUGS (4)
  1. FLOMAX [Suspect]
     Indication: BENIGN PROSTATIC HYPERPLASIA
     Dosage: 0.4 MG
     Route: 048
  2. DOXAZOSIN [Suspect]
     Indication: HYPERTENSION
  3. CYCLOPENTOLATE (CYCLOPENTOLATE) [Concomitant]
  4. PHENYLEPHRINE (PHENYLEPHRINE) [Concomitant]

REACTIONS (2)
  - CATARACT [None]
  - FLOPPY IRIS SYNDROME [None]
